FAERS Safety Report 13343949 (Version 1)
Quarter: 2017Q1

REPORT INFORMATION
  Report Type: Spontaneous
  Country: US (occurrence: US)
  Receive Date: 20170316
  Receipt Date: 20170316
  Transmission Date: 20170428
  Serious: Yes (Other)
  Sender: FDA-Public Use
  Company Number: US-SUNOVION-2017SUN001169

PATIENT
  Age: 40 Year
  Sex: Female
  Weight: 72.56 kg

DRUGS (2)
  1. LATUDA [Suspect]
     Active Substance: LURASIDONE HYDROCHLORIDE
     Dosage: 20 MG, QD
     Route: 048
     Dates: start: 2016
  2. LITHIUM. [Suspect]
     Active Substance: LITHIUM
     Dosage: UNK

REACTIONS (6)
  - Somnolence [Not Recovered/Not Resolved]
  - Pregnancy [Unknown]
  - Dizziness [Not Recovered/Not Resolved]
  - Foetal death [Recovered/Resolved]
  - Drug dose omission [Unknown]
  - Weight increased [Not Recovered/Not Resolved]

NARRATIVE: CASE EVENT DATE: 2016
